FAERS Safety Report 18741679 (Version 3)
Quarter: 2021Q1

REPORT INFORMATION
  Report Type: Report from Study
  Country: IT (occurrence: IT)
  Receive Date: 20210114
  Receipt Date: 20210305
  Transmission Date: 20210419
  Serious: Yes (Death, Disabling)
  Sender: FDA-Public Use
  Company Number: IT-EXELIXIS-XL18421036563

PATIENT
  Age: 56 Year
  Sex: Male
  Weight: 88.2 kg

DRUGS (12)
  1. XL184 [Suspect]
     Active Substance: CABOZANTINIB
     Indication: THYROID CANCER
     Dosage: 60 MG, QD
     Route: 048
     Dates: start: 20201223
  2. MOVICOL [Concomitant]
     Active Substance: POLYETHYLENE GLYCOL 3350\POTASSIUM CHLORIDE\SODIUM BICARBONATE\SODIUM CHLORIDE
  3. DELTACORTENE [Concomitant]
     Active Substance: PREDNISONE
  4. CALCIJEX [Concomitant]
     Active Substance: CALCITRIOL
  5. PANTOPRAZOLO [Concomitant]
     Active Substance: PANTOPRAZOLE SODIUM
  6. PREGABALIN. [Concomitant]
     Active Substance: PREGABALIN
  7. FENTANYL. [Concomitant]
     Active Substance: FENTANYL
  8. DEURSIL [Concomitant]
     Active Substance: URSODIOL
  9. L?THYROXINE [Concomitant]
     Active Substance: LEVOTHYROXINE
  10. LASIX [Concomitant]
     Active Substance: FUROSEMIDE
  11. PROTIFAR [Concomitant]
     Active Substance: DIETARY SUPPLEMENT
  12. ALLOPURINOLO [Concomitant]
     Active Substance: ALLOPURINOL

REACTIONS (1)
  - Hepatic failure [Fatal]

NARRATIVE: CASE EVENT DATE: 20201216
